FAERS Safety Report 25546701 (Version 2)
Quarter: 2025Q3

REPORT INFORMATION
  Report Type: Spontaneous
  Country: JP (occurrence: JP)
  Receive Date: 20250714
  Receipt Date: 20250901
  Transmission Date: 20251021
  Serious: Yes (Death, Disabling)
  Sender: ASTELLAS
  Company Number: JP-ASTELLAS-2025-AER-038236

PATIENT
  Age: 8 Decade
  Sex: Male

DRUGS (1)
  1. XTANDI [Suspect]
     Active Substance: ENZALUTAMIDE
     Indication: Product used for unknown indication
     Route: 048
     Dates: start: 202504

REACTIONS (3)
  - Urinary bladder rupture [Fatal]
  - Bladder necrosis [Fatal]
  - Post procedural sepsis [Fatal]
